FAERS Safety Report 20696407 (Version 1)
Quarter: 2022Q2

REPORT INFORMATION
  Report Type: Spontaneous
  Country: ID (occurrence: ID)
  Receive Date: 20220411
  Receipt Date: 20220411
  Transmission Date: 20220721
  Serious: Yes (Other)
  Sender: FDA-Public Use
  Company Number: ID-NOVARTISPH-NVSC2022ID079523

PATIENT
  Age: 39 Year
  Sex: Male

DRUGS (2)
  1. SECUKINUMAB [Suspect]
     Active Substance: SECUKINUMAB
     Indication: Psoriasis
     Dosage: UNK (INDUCTION DOSE)
     Route: 065
     Dates: start: 2020
  2. SECUKINUMAB [Suspect]
     Active Substance: SECUKINUMAB
     Indication: Psoriatic arthropathy
     Dosage: UNK (MAINTENANCE DOSE)
     Route: 065
     Dates: start: 2020

REACTIONS (1)
  - Autoimmune haemolytic anaemia [Recovering/Resolving]
